FAERS Safety Report 6496266-7 (Version None)
Quarter: 2009Q4

REPORT INFORMATION
  Report Type: 
  Country: None (occurrence: None)
  Receive Date: 20091214
  Receipt Date: 20091207
  Transmission Date: 20100525
  Serious: No
  Sender: FDA-Public Use
  Company Number: US-ROXANE LABORATORIES, INC.-2009-RO-01230RO

PATIENT
  Sex: Female

DRUGS (1)
  1. CALCIUM ACETATE [Suspect]
     Indication: HYPERPHOSPHATAEMIA
     Dates: start: 20080101, end: 20081201

REACTIONS (1)
  - HYPERCALCAEMIA [None]
